FAERS Safety Report 6936848-9 (Version None)
Quarter: 2010Q3

REPORT INFORMATION
  Report Type: 
  Country: None (occurrence: None)
  Receive Date: 20100823
  Receipt Date: 20100813
  Transmission Date: 20110219
  Serious: Yes (Hospitalization)
  Sender: FDA-Public Use
  Company Number: US-RB-014240-10

PATIENT
  Age: 26 Year
  Sex: Male

DRUGS (1)
  1. SUBOXONE [Suspect]
     Indication: PRODUCT USED FOR UNKNOWN INDICATION
     Dosage: UNKNOWN DOSING DETAILS
     Route: 065

REACTIONS (4)
  - CONVULSION [None]
  - MULTIPLE FRACTURES [None]
  - PAIN [None]
  - ROAD TRAFFIC ACCIDENT [None]
